FAERS Safety Report 13519588 (Version 2)
Quarter: 2017Q2

REPORT INFORMATION
  Report Type: Spontaneous
  Country: US (occurrence: US)
  Receive Date: 20170505
  Receipt Date: 20170531
  Transmission Date: 20170830
  Serious: Yes (Disabling, Other)
  Sender: FDA-Public Use
  Company Number: US-ALLERGAN-1717312US

PATIENT
  Age: 63 Year
  Sex: Male

DRUGS (7)
  1. EXFORGE [Concomitant]
     Active Substance: AMLODIPINE BESYLATE\VALSARTAN
     Indication: HYPERTENSION
  2. COMBIGAN [Suspect]
     Active Substance: BRIMONIDINE TARTRATE\TIMOLOL MALEATE
     Indication: GLAUCOMA
     Dosage: 2 GTT, BID
     Route: 047
     Dates: start: 2009
  3. BYSTOLIC [Concomitant]
     Active Substance: NEBIVOLOL HYDROCHLORIDE
     Indication: HYPERTENSION
  4. AZOPT [Concomitant]
     Active Substance: BRINZOLAMIDE
     Indication: GLAUCOMA
     Route: 047
  5. TRAVATAN [Concomitant]
     Active Substance: TRAVOPROST
     Indication: GLAUCOMA
     Route: 047
  6. JANUVIA [Concomitant]
     Active Substance: SITAGLIPTIN PHOSPHATE
     Indication: DIABETES MELLITUS
  7. ASPIRIN. [Concomitant]
     Active Substance: ASPIRIN

REACTIONS (3)
  - Prostate cancer [Not Recovered/Not Resolved]
  - Blindness [Not Recovered/Not Resolved]
  - Renal cancer [Recovered/Resolved]

NARRATIVE: CASE EVENT DATE: 2010
